FAERS Safety Report 4482973-4 (Version None)
Quarter: 2004Q3

REPORT INFORMATION
  Report Type: 
  Country: None (occurrence: None)
  Receive Date: 20040921
  Receipt Date: 20040527
  Transmission Date: 20050211
  Serious: Yes (Hospitalization)
  Sender: FDA-Public Use
  Company Number: 163-20785-04060028

PATIENT
  Age: 72 Year
  Sex: Male
  Weight: 97.977 kg

DRUGS (12)
  1. THALOMID [Suspect]
     Indication: PROSTATE CANCER
     Dosage: 100 MG, DAILY, ORAL
     Route: 048
     Dates: start: 20040301, end: 20040427
  2. EMCYT [Suspect]
     Indication: PROSTATE CANCER
     Dosage: 140 MG, TID DAYS 1-3
  3. TAXOTERE [Suspect]
     Indication: PROSTATE CANCER
     Dosage: 25 MG/M2, WEEKLY, WEEKS 1-3
     Dates: start: 20040101, end: 20040101
  4. HCZT (HYDROCHLOROTHIAZIDE) [Concomitant]
  5. ZOCOR [Concomitant]
  6. LEXAPRO [Concomitant]
  7. GLUCOPHAGE [Concomitant]
  8. GLYBURIDE [Concomitant]
  9. DIPYRIMIDINE [Concomitant]
  10. ALLOPURINOL [Concomitant]
  11. COMPAZINE [Concomitant]
  12. ARICEPT [Concomitant]

REACTIONS (1)
  - DEEP VEIN THROMBOSIS [None]
